FAERS Safety Report 6867794-7 (Version None)
Quarter: 2010Q3

REPORT INFORMATION
  Report Type: 
  Country: None (occurrence: None)
  Receive Date: 20100721
  Receipt Date: 20100721
  Transmission Date: 20110219
  Serious: No
  Sender: FDA-Public Use
  Company Number: None

PATIENT
  Age: 49 Year
  Sex: Female
  Weight: 70.7611 kg

DRUGS (2)
  1. OXCARBAZEPINE [Suspect]
     Indication: ANTIINFLAMMATORY THERAPY
     Dosage: 2 TABS 1X PER DAY
     Dates: start: 20100522
  2. OXCARBAZEPINE [Suspect]
     Indication: OSTEOARTHRITIS
     Dosage: 2 TABS 1X PER DAY
     Dates: start: 20100522

REACTIONS (3)
  - DRUG DISPENSING ERROR [None]
  - MALAISE [None]
  - MEDICATION ERROR [None]
